FAERS Safety Report 26062396 (Version 3)
Quarter: 2025Q4

REPORT INFORMATION
  Report Type: Spontaneous
  Country: SV (occurrence: SV)
  Receive Date: 20251119
  Receipt Date: 20251204
  Transmission Date: 20260118
  Serious: Yes (Hospitalization)
  Sender: NOVARTIS
  Company Number: VE-002147023-NVSC2025SV175016

PATIENT
  Sex: Female

DRUGS (1)
  1. GLIVEC [Suspect]
     Active Substance: IMATINIB MESYLATE
     Indication: Chronic myeloid leukaemia
     Dosage: 300 MG, QD (3 X 100 MG) EACH DAY (AS REPORTED)
     Route: 048
     Dates: start: 202402

REACTIONS (1)
  - Spinal pain [Unknown]
